FAERS Safety Report 4369786-9 (Version None)
Quarter: 2004Q2

REPORT INFORMATION
  Report Type: 
  Country: None (occurrence: None)
  Receive Date: 20040528
  Receipt Date: 20040519
  Transmission Date: 20050107
  Serious: Yes (Other)
  Sender: FDA-Public Use
  Company Number: 040521-0000360

PATIENT
  Sex: Male

DRUGS (1)
  1. DESOXYN [Suspect]
     Dates: start: 19950101, end: 19990101

REACTIONS (1)
  - HAIRY CELL LEUKAEMIA [None]
